FAERS Safety Report 9580754 (Version 1)
Quarter: 2013Q4

REPORT INFORMATION
  Report Type: Spontaneous
  Country: US (occurrence: None)
  Receive Date: 20131001
  Receipt Date: 20131001
  Transmission Date: 20140711
  Serious: Yes (Disabling)
  Sender: FDA-Public Use
  Company Number: None

PATIENT
  Age: 33 Year
  Sex: Female
  Weight: 77.11 kg

DRUGS (2)
  1. LEVAQUIN [Suspect]
     Dates: start: 20050130
  2. CIPRO [Suspect]

REACTIONS (4)
  - Arthralgia [None]
  - Paraesthesia [None]
  - Hypoaesthesia [None]
  - Neuralgia [None]
